FAERS Safety Report 21693593 (Version 5)
Quarter: 2023Q1

REPORT INFORMATION
  Report Type: Report from Study
  Country: US (occurrence: US)
  Receive Date: 20221207
  Receipt Date: 20230307
  Transmission Date: 20230417
  Serious: Yes (Other)
  Sender: FDA-Public Use
  Company Number: US-002147023-NVSC2022US282264

PATIENT
  Age: 66 Year
  Sex: Female

DRUGS (1)
  1. LEQVIO [Suspect]
     Active Substance: INCLISIRAN SODIUM
     Indication: Product used for unknown indication
     Dosage: UNK
     Route: 058
     Dates: start: 20221108

REACTIONS (11)
  - Cataract [Unknown]
  - Gallbladder disorder [Unknown]
  - Tooth disorder [Unknown]
  - Skin atrophy [Recovering/Resolving]
  - Pain [Unknown]
  - Stress [Unknown]
  - Fibromyalgia [Unknown]
  - Blood cholesterol decreased [Unknown]
  - Back pain [Unknown]
  - Pain in extremity [Unknown]
  - Injection site erythema [Recovering/Resolving]

NARRATIVE: CASE EVENT DATE: 20221115
